FAERS Safety Report 6091783-6 (Version None)
Quarter: 2009Q1

REPORT INFORMATION
  Report Type: 
  Country: None (occurrence: None)
  Receive Date: 20090225
  Receipt Date: 20080616
  Transmission Date: 20090719
  Serious: No
  Sender: FDA-Public Use
  Company Number: A0733205A

PATIENT
  Sex: Female

DRUGS (1)
  1. VALTREX [Suspect]
     Indication: DRUG USE FOR UNKNOWN INDICATION
     Route: 048

REACTIONS (2)
  - WEIGHT INCREASED [None]
  - WEIGHT LOSS POOR [None]
